FAERS Safety Report 6264491-6 (Version None)
Quarter: 2009Q3

REPORT INFORMATION
  Report Type: 
  Country: None (occurrence: None)
  Receive Date: 20090708
  Receipt Date: 20090702
  Transmission Date: 20100115
  Serious: Yes (Death)
  Sender: FDA-Public Use
  Company Number: 2009SP014172

PATIENT
  Age: 47 Year
  Sex: Male

DRUGS (7)
  1. RINDERON (BETAMETHASONE SODUIM PHOSPHATE) (BETAMETHASONE SODIUM PHOSPH [Suspect]
     Indication: IMMUNOSUPPRESSANT DRUG THERAPY
     Dosage: 8 MG;QD;IV
     Route: 042
     Dates: start: 20060407, end: 20080129
  2. ENDOXAN (CYCLOPHOSPHAMIDE) [Suspect]
     Indication: IMMUNOSUPPRESSANT DRUG THERAPY
     Dosage: 140 MG;QD;IV
     Route: 042
     Dates: start: 20060407, end: 20060414
  3. SOLU-MEDROL [Suspect]
     Indication: IMMUNOSUPPRESSANT DRUG THERAPY
     Dosage: 145 MG;QD;IV
     Route: 042
     Dates: start: 20060407
  4. PROGRAF [Suspect]
     Indication: IMMUNOSUPPRESSANT DRUG THERAPY
     Dosage: 6 MG;QD;PO
     Route: 048
     Dates: start: 20060407, end: 20080129
  5. CELLCEPT [Suspect]
     Indication: IMMUNOSUPPRESSANT DRUG THERAPY
     Dosage: 2000 MG;QD;PO
     Route: 048
     Dates: start: 20060415, end: 20070209
  6. PROSTAGLANDIN E1 [Concomitant]
  7. FOY [Concomitant]

REACTIONS (6)
  - HEADACHE [None]
  - HEPATIC NEOPLASM MALIGNANT RECURRENT [None]
  - METASTASES TO ABDOMINAL CAVITY [None]
  - METASTASES TO BONE [None]
  - METASTASES TO CENTRAL NERVOUS SYSTEM [None]
  - VISUAL FIELD DEFECT [None]
